FAERS Safety Report 6770197-7 (Version None)
Quarter: 2010Q2

REPORT INFORMATION
  Report Type: 
  Country: None (occurrence: None)
  Receive Date: 20100615
  Receipt Date: 20100602
  Transmission Date: 20101027
  Serious: Yes (Hospitalization, Other)
  Sender: FDA-Public Use
  Company Number: US-ELI_LILLY_AND_COMPANY-US201006001425

PATIENT
  Sex: Male

DRUGS (5)
  1. CYMBALTA [Suspect]
     Dosage: 60 MG, DAILY (1/D)
  2. CYMBALTA [Suspect]
     Dosage: 30 MG, UNK
  3. OLANZAPINE [Suspect]
     Dosage: 2.5 MG, DAILY (1/D)
  4. DEPAKOTE [Concomitant]
  5. ABILIFY [Concomitant]

REACTIONS (12)
  - ASTHENIA [None]
  - BLOOD GLUCOSE DECREASED [None]
  - DYSARTHRIA [None]
  - FALL [None]
  - GENERAL PHYSICAL HEALTH DETERIORATION [None]
  - INFECTION [None]
  - KNEE ARTHROPLASTY [None]
  - MALAISE [None]
  - NEUROPATHY PERIPHERAL [None]
  - SPEECH DISORDER [None]
  - URINARY INCONTINENCE [None]
  - WEIGHT DECREASED [None]
